FAERS Safety Report 9564185 (Version 1)
Quarter: 2013Q3

REPORT INFORMATION
  Report Type: Spontaneous
  Country: DK (occurrence: DK)
  Receive Date: 20130930
  Receipt Date: 20130930
  Transmission Date: 20140515
  Serious: Yes (Other)
  Sender: FDA-Public Use
  Company Number: DK-AMGEN-DNKSP2013067684

PATIENT
  Age: 68 Year
  Sex: 0
  Weight: 70 kg

DRUGS (1)
  1. PROLIA [Suspect]
     Indication: OSTEOPOROSIS
     Dosage: 60 MG/ML, Q6MO
     Route: 065
     Dates: start: 20100316

REACTIONS (1)
  - Osteonecrosis of jaw [Unknown]
